FAERS Safety Report 19205509 (Version 1)
Quarter: 2021Q2

REPORT INFORMATION
  Report Type: Spontaneous
  Country: GB (occurrence: GB)
  Receive Date: 20210503
  Receipt Date: 20210503
  Transmission Date: 20210717
  Serious: Yes (Other)
  Sender: FDA-Public Use
  Company Number: GB-TORRENT-00025582

PATIENT
  Age: 43 Year
  Sex: Female
  Weight: 87 kg

DRUGS (3)
  1. DULOXETINE. [Suspect]
     Active Substance: DULOXETINE
     Indication: DEPRESSION
     Dosage: 30MG
     Route: 048
     Dates: start: 20171101
  2. IBUPROFEN. [Concomitant]
     Active Substance: IBUPROFEN
     Indication: ILL-DEFINED DISORDER
     Dosage: UNKNOWN
  3. PARACETAMOL [Concomitant]
     Active Substance: ACETAMINOPHEN
     Indication: ILL-DEFINED DISORDER
     Dosage: UNKNOWN

REACTIONS (7)
  - Confusional state [Unknown]
  - Feeling abnormal [Unknown]
  - Anxiety [Unknown]
  - Fatigue [Unknown]
  - Impaired work ability [Unknown]
  - Drug withdrawal syndrome [Not Recovered/Not Resolved]
  - Dizziness [Unknown]

NARRATIVE: CASE EVENT DATE: 20210415
